FAERS Safety Report 25192564 (Version 1)
Quarter: 2025Q2

REPORT INFORMATION
  Report Type: Spontaneous
  Country: NL (occurrence: NL)
  Receive Date: 20250414
  Receipt Date: 20250414
  Transmission Date: 20250717
  Serious: Yes (Other)
  Sender: MYLAN
  Company Number: None

PATIENT
  Age: 60 Year
  Sex: Female
  Weight: 79.6 kg

DRUGS (17)
  1. AMLODIPINE [Suspect]
     Active Substance: AMLODIPINE BESYLATE
     Indication: Hypertension
     Dosage: 10 MILLIGRAM, QD,1 X PER DAY 1 PIECE
     Dates: start: 20241122, end: 20241216
  2. GLIMEPIRIDE [Concomitant]
     Active Substance: GLIMEPIRIDE
  3. ASPIRIN [Concomitant]
     Active Substance: ASPIRIN
  4. CHOLESTYRAMINE [Concomitant]
     Active Substance: CHOLESTYRAMINE
  5. LEVOTHYROXINE [Concomitant]
     Active Substance: LEVOTHYROXINE
  6. LEVOTHYROXINE [Concomitant]
     Active Substance: LEVOTHYROXINE
  7. ALLOPURINOL [Concomitant]
     Active Substance: ALLOPURINOL
  8. ALBUTEROL [Concomitant]
     Active Substance: ALBUTEROL
  9. ALBUTEROL [Concomitant]
     Active Substance: ALBUTEROL
  10. BUDESONIDE [Concomitant]
     Active Substance: BUDESONIDE
  11. CARBOMER [Concomitant]
     Active Substance: CARBOMER
  12. FAMOTIDINE [Concomitant]
     Active Substance: FAMOTIDINE
  13. METFORMIN HYDROCHLORIDE [Concomitant]
     Active Substance: METFORMIN HYDROCHLORIDE
  14. METOPROLOL [Concomitant]
     Active Substance: METOPROLOL
  15. METOPROLOL [Concomitant]
     Active Substance: METOPROLOL
  16. VALSARTAN [Concomitant]
     Active Substance: VALSARTAN
  17. VALSARTAN [Concomitant]
     Active Substance: VALSARTAN

REACTIONS (2)
  - Pulmonary oedema [Recovered/Resolved]
  - Oedema peripheral [Recovered/Resolved]
